FAERS Safety Report 22927052 (Version 2)
Quarter: 2023Q4

REPORT INFORMATION
  Report Type: Spontaneous
  Country: FR (occurrence: FR)
  Receive Date: 20230911
  Receipt Date: 20231031
  Transmission Date: 20240110
  Serious: Yes (Hospitalization, Other)
  Sender: FDA-Public Use
  Company Number: FR-AFSSAPS-NY2023001205

PATIENT
  Age: 72 Year
  Sex: Female
  Weight: 43 kg

DRUGS (9)
  1. CARBOPLATIN [Suspect]
     Active Substance: CARBOPLATIN
     Indication: Lung adenocarcinoma
     Dosage: 1 DOSAGE FORM, CYCLICAL (2?ME CURE0
     Route: 042
     Dates: start: 20230718, end: 20230718
  2. CARBOPLATIN [Suspect]
     Active Substance: CARBOPLATIN
     Dosage: 1 DOSAGE FORM, CYCLICAL (1?RE CURE)
     Route: 042
     Dates: start: 20230623, end: 20230623
  3. ALIMTA [Suspect]
     Active Substance: PEMETREXED DISODIUM
     Indication: Lung adenocarcinoma
     Dosage: 1 DOSAGE FORM, CYCLICAL (1?RE CURE)
     Route: 042
     Dates: start: 20230623, end: 20230623
  4. ALIMTA [Suspect]
     Active Substance: PEMETREXED DISODIUM
     Dosage: 1 DOSAGE FORM, CYCLICAL (2?ME CURE)
     Route: 042
     Dates: start: 20230718, end: 20230718
  5. KEYTRUDA [Suspect]
     Active Substance: PEMBROLIZUMAB
     Indication: Lung adenocarcinoma
     Dosage: 1 DOSAGE FORM, CYCLICAL (1?RE CURE)
     Route: 042
     Dates: start: 20230623, end: 20230623
  6. KEYTRUDA [Suspect]
     Active Substance: PEMBROLIZUMAB
     Dosage: 1 DOSAGE FORM, CYCLICAL (2?ME CURE)
     Route: 042
     Dates: start: 20230718, end: 20230718
  7. Temesta [Concomitant]
     Indication: Anxiety
     Dosage: 0.5 MILLIGRAM, ONCE A DAY
     Route: 048
  8. Acide folique api [Concomitant]
     Indication: Vitamin supplementation
     Dosage: 0.4 MILLIGRAM, ONCE A DAY
     Route: 048
  9. GLYCOPYRRONIUM\INDACATEROL [Concomitant]
     Active Substance: GLYCOPYRRONIUM\INDACATEROL
     Indication: Anxiety
     Dosage: 1 DOSAGE FORM, ONCE A DAY

REACTIONS (1)
  - Acute kidney injury [Not Recovered/Not Resolved]

NARRATIVE: CASE EVENT DATE: 20230711
